FAERS Safety Report 15439764 (Version 2)
Quarter: 2019Q2

REPORT INFORMATION
  Report Type: Spontaneous
  Country: US (occurrence: US)
  Receive Date: 20180928
  Receipt Date: 20190610
  Transmission Date: 20190711
  Serious: Yes (Other)
  Sender: FDA-Public Use
  Company Number: US-ASTRAZENECA-2018SF20613

PATIENT
  Age: 61 Year
  Sex: Female
  Weight: 63.5 kg

DRUGS (10)
  1. PREMARIN [Concomitant]
     Active Substance: ESTROGENS, CONJUGATED
  2. NEXIUM [Suspect]
     Active Substance: ESOMEPRAZOLE MAGNESIUM
     Route: 048
     Dates: start: 200701, end: 201610
  3. METHOTREXATE. [Concomitant]
     Active Substance: METHOTREXATE
  4. NEXIUM [Suspect]
     Active Substance: ESOMEPRAZOLE MAGNESIUM
     Dosage: GENERIC
     Route: 048
     Dates: start: 201610
  5. GABAPENTIN. [Concomitant]
     Active Substance: GABAPENTIN
  6. A-HYDROCORT [Concomitant]
     Active Substance: HYDROCORTISONE SODIUM SUCCINATE
  7. LISINOPRIL. [Concomitant]
     Active Substance: LISINOPRIL
  8. LANTUS [Concomitant]
     Active Substance: INSULIN GLARGINE
  9. TYLENOL [Concomitant]
     Active Substance: ACETAMINOPHEN
  10. HUMALOG [Concomitant]
     Active Substance: INSULIN LISPRO

REACTIONS (4)
  - Chronic kidney disease [Not Recovered/Not Resolved]
  - Hyperparathyroidism secondary [Unknown]
  - Renal failure [Unknown]
  - End stage renal disease [Unknown]

NARRATIVE: CASE EVENT DATE: 20160929
